FAERS Safety Report 5867092-4 (Version None)
Quarter: 2008Q3

REPORT INFORMATION
  Report Type: 
  Country: None (occurrence: None)
  Receive Date: 20080902
  Receipt Date: 20080825
  Transmission Date: 20090109
  Serious: Yes (Hospitalization)
  Sender: FDA-Public Use
  Company Number: D0058390A

PATIENT
  Age: 46 Year
  Sex: Female

DRUGS (5)
  1. KIVEXA [Suspect]
     Indication: HIV INFECTION
     Dosage: 900MG UNKNOWN
     Route: 048
     Dates: start: 20070718
  2. ADRIAMYCIN PFS [Suspect]
     Indication: BURKITT'S LYMPHOMA
     Dosage: 42.5MG PER DAY
     Route: 042
     Dates: start: 20070730
  3. CYCLOPHOSPHAMIDE [Concomitant]
     Indication: BURKITT'S LYMPHOMA
     Dosage: 340MG PER DAY
     Route: 042
     Dates: start: 20070730, end: 20070805
  4. VINCRISTINE [Concomitant]
     Indication: BURKITT'S LYMPHOMA
     Dosage: 2MG PER DAY
     Route: 042
     Dates: start: 20070730
  5. KALETRA [Concomitant]
     Indication: HIV INFECTION
     Route: 048
     Dates: start: 20080718

REACTIONS (5)
  - ALANINE AMINOTRANSFERASE INCREASED [None]
  - BLOOD ALKALINE PHOSPHATASE INCREASED [None]
  - DRUG INTERACTION [None]
  - HEPATIC ENZYME INCREASED [None]
  - TRANSAMINASES INCREASED [None]
